FAERS Safety Report 10073121 (Version 4)
Quarter: 2014Q3

REPORT INFORMATION
  Report Type: Report from Study
  Country: DK (occurrence: DK)
  Receive Date: 20140411
  Receipt Date: 20140808
  Transmission Date: 20150326
  Serious: Yes (Hospitalization)
  Sender: FDA-Public Use
  Company Number: DK-EISAI INC-E7389-04970-SOL-DK

PATIENT
  Age: 64 Year
  Sex: Female
  Weight: 99 kg

DRUGS (5)
  1. HALAVEN [Suspect]
     Active Substance: ERIBULIN MESYLATE
     Dosage: 1.85 MG (75% OF 1.24 MG/M2)
     Route: 041
     Dates: start: 20140403, end: 20140403
  2. NOVOMIX [Concomitant]
     Active Substance: INSULIN ASPART
  3. LISINOPRIL. [Concomitant]
     Active Substance: LISINOPRIL
  4. FURIX RETARD [Concomitant]
     Active Substance: FUROSEMIDE
  5. HALAVEN [Suspect]
     Active Substance: ERIBULIN MESYLATE
     Indication: BREAST CANCER
     Route: 041
     Dates: start: 20140327, end: 20140327

REACTIONS (8)
  - Vomiting [Not Recovered/Not Resolved]
  - Decreased appetite [Unknown]
  - Insomnia [Unknown]
  - Nausea [Not Recovered/Not Resolved]
  - Diabetes mellitus inadequate control [Recovered/Resolved]
  - Febrile neutropenia [Recovered/Resolved]
  - Metastases to spine [Not Recovered/Not Resolved]
  - Fatigue [Not Recovered/Not Resolved]

NARRATIVE: CASE EVENT DATE: 20140327
